FAERS Safety Report 9520966 (Version 1)
Quarter: 2013Q3

REPORT INFORMATION
  Report Type: Spontaneous
  Country: US (occurrence: US)
  Receive Date: 20130913
  Receipt Date: 20130913
  Transmission Date: 20140515
  Serious: No
  Sender: FDA-Public Use
  Company Number: US-PFIZER INC-2013261683

PATIENT
  Age: 27 Year
  Sex: Female

DRUGS (7)
  1. NEURONTIN [Suspect]
     Dosage: UNK
  2. MORPHINE SULFATE [Suspect]
     Dosage: UNK
  3. AMOXICILLIN [Suspect]
     Dosage: UNK
  4. MARINOL [Suspect]
     Dosage: UNK
  5. OXYCONTIN [Suspect]
     Dosage: UNK
  6. TYLENOL # 3 [Suspect]
     Dosage: UNK
  7. PERCOCET [Suspect]
     Dosage: UNK

REACTIONS (1)
  - Drug hypersensitivity [Unknown]
